FAERS Safety Report 5748003-9 (Version None)
Quarter: 2008Q2

REPORT INFORMATION
  Report Type: 
  Country: None (occurrence: None)
  Receive Date: 20080523
  Receipt Date: 20080512
  Transmission Date: 20081010
  Serious: Yes (Disabling, Other)
  Sender: FDA-Public Use
  Company Number: US-ELI_LILLY_AND_COMPANY-US200805002233

PATIENT
  Age: 40 Year
  Sex: Female

DRUGS (4)
  1. PROZAC [Suspect]
     Indication: DEPRESSION
     Dosage: 20 MG, UNK
  2. PROZAC [Suspect]
     Dosage: 30 MG, UNK
  3. KLONOPIN [Concomitant]
  4. EFFEXOR [Concomitant]

REACTIONS (4)
  - ANOREXIA NERVOSA [None]
  - CONVERSION DISORDER [None]
  - CONVULSION [None]
  - SUICIDAL IDEATION [None]
